FAERS Safety Report 8832574 (Version 1)
Quarter: 2012Q4

REPORT INFORMATION
  Report Type: Spontaneous
  Country: US (occurrence: None)
  Receive Date: 20121009
  Receipt Date: 20121009
  Transmission Date: 20130627
  Serious: Yes (Life-Threatening, Hospitalization, Disabling)
  Sender: FDA-Public Use
  Company Number: None

PATIENT
  Age: 50 Year
  Sex: Female
  Weight: 54.43 kg

DRUGS (1)
  1. SULFAMETHOXAZOLE AND TRIMETHOPRIM DS [Suspect]
     Route: 048
     Dates: start: 20120720, end: 20120809

REACTIONS (8)
  - Cough [None]
  - Nasal oedema [None]
  - Unevaluable event [None]
  - Dyspnoea [None]
  - Headache [None]
  - Arthralgia [None]
  - Lung disorder [None]
  - Malaise [None]
